FAERS Safety Report 5640971-9 (Version None)
Quarter: 2008Q1

REPORT INFORMATION
  Report Type: 
  Country: None (occurrence: None)
  Receive Date: 20080227
  Receipt Date: 20080215
  Transmission Date: 20080703
  Serious: Yes (Hospitalization, Other)
  Sender: FDA-Public Use
  Company Number: US-ROCHE-543434

PATIENT
  Age: 55 Year
  Sex: Male
  Weight: 86.2 kg

DRUGS (2)
  1. PEG-INTERFERON A-2A (RO 25-8310) [Suspect]
     Dosage: FORM: PRE-FILLED SYRINGE
     Route: 065
     Dates: start: 20070622
  2. RIBAVIRIN [Suspect]
     Route: 065
     Dates: start: 20070622

REACTIONS (3)
  - ANAL FISSURE [None]
  - POSTOPERATIVE ABSCESS [None]
  - TYPE 2 DIABETES MELLITUS [None]
